FAERS Safety Report 15996192 (Version 3)
Quarter: 2019Q3

REPORT INFORMATION
  Report Type: Spontaneous
  Country: US (occurrence: US)
  Receive Date: 20190222
  Receipt Date: 20190916
  Transmission Date: 20191004
  Serious: Yes (Other)
  Sender: FDA-Public Use
  Company Number: US-TAKEDA-2019TUS008663

PATIENT

DRUGS (6)
  1. PRILOSEC [Suspect]
     Active Substance: OMEPRAZOLE MAGNESIUM
     Indication: DYSPEPSIA
     Dosage: 40 MILLIGRAM, QD
     Route: 048
     Dates: start: 2002, end: 2017
  2. PREVACID 24 HR [Suspect]
     Active Substance: LANSOPRAZOLE
     Indication: DYSPEPSIA
     Dosage: 15 MILLIGRAM, QD
     Route: 048
     Dates: start: 2002, end: 2017
  3. PROTONIX [Suspect]
     Active Substance: PANTOPRAZOLE SODIUM
     Indication: PRODUCT USED FOR UNKNOWN INDICATION
     Dosage: UNK
     Route: 048
  4. PREVACID [Suspect]
     Active Substance: LANSOPRAZOLE
     Indication: DYSPEPSIA
     Dosage: 30 MILLIGRAM, QD
     Route: 048
     Dates: start: 2002, end: 2017
  5. NEXIUM [Suspect]
     Active Substance: ESOMEPRAZOLE MAGNESIUM
     Indication: DYSPEPSIA
     Dosage: 40 MILLIGRAM, QD
     Route: 048
     Dates: start: 2002, end: 2017
  6. OMEPRAZOLE                         /00661202/ [Suspect]
     Active Substance: OMEPRAZOLE SODIUM
     Indication: DYSPEPSIA
     Dosage: 20 MILLIGRAM, QD
     Route: 048
     Dates: start: 2002, end: 2017

REACTIONS (2)
  - Chronic kidney disease [Not Recovered/Not Resolved]
  - Renal injury [Unknown]

NARRATIVE: CASE EVENT DATE: 2018
